FAERS Safety Report 20112896 (Version 1)
Quarter: 2021Q4

REPORT INFORMATION
  Report Type: Spontaneous
  Country: FR (occurrence: FR)
  Receive Date: 20211125
  Receipt Date: 20211125
  Transmission Date: 20220303
  Serious: Yes (Hospitalization, Other)
  Sender: FDA-Public Use
  Company Number: None

PATIENT
  Age: 18 Year
  Sex: Female

DRUGS (7)
  1. XANAX [Suspect]
     Active Substance: ALPRAZOLAM
     Dosage: 1 BLISTER
     Route: 048
     Dates: start: 20210616, end: 20210616
  2. XANAX [Suspect]
     Active Substance: ALPRAZOLAM
     Dosage: 1 MG, 1X/DAY (0.5 MG (1/2  1/2  1))
     Route: 048
  3. TRANXENE [Suspect]
     Active Substance: CLORAZEPATE DIPOTASSIUM
     Dosage: 1 BLISTER
     Route: 048
     Dates: start: 20210616, end: 20210616
  4. COCAINE [Suspect]
     Active Substance: COCAINE
     Dosage: 2 G EVERYDAY IN THE LAST DAYS
     Route: 055
     Dates: start: 202106
  5. ALCOHOL [Suspect]
     Active Substance: ALCOHOL
     Dosage: UNSPECIFIED DOSE
     Route: 048
     Dates: start: 20210616, end: 20210616
  6. KETAMINE HYDROCHLORIDE [Suspect]
     Active Substance: KETAMINE HYDROCHLORIDE
     Dosage: 1 G EVERYDAY
     Route: 055
  7. DOXYLAMINE SUCCINATE [Concomitant]
     Active Substance: DOXYLAMINE SUCCINATE
     Dosage: UNK
     Route: 048

REACTIONS (5)
  - Agitation [Recovered/Resolved]
  - Suicide attempt [Recovered/Resolved]
  - Poisoning deliberate [Recovered/Resolved]
  - Sinus arrhythmia [Recovered/Resolved]
  - Drug abuse [Recovering/Resolving]

NARRATIVE: CASE EVENT DATE: 20210616
